FAERS Safety Report 6239805 (Version 3)
Quarter: 2013Q4

REPORT INFORMATION
  Report Type: Report from Study
  Country: CA (occurrence: CA)
  Receive Date: 20070216
  Receipt Date: 20131125
  Transmission Date: 20140711
  Serious: Yes (Other)
  Sender: FDA-Public Use
  Company Number: CA-PFIZER INC-2007010170

PATIENT
  Age: 49 Year
  Sex: Male
  Weight: 77.1 kg

DRUGS (8)
  1. SUTENT [Suspect]
     Indication: METASTATIC RENAL CELL CARCINOMA
     Dosage: 50 MG, DAILY
     Route: 048
     Dates: start: 20061102, end: 20070203
  2. CLONAZEPAM [Concomitant]
     Indication: ANXIETY
     Dosage: 0.5 MG, 2X/DAY
     Route: 048
     Dates: start: 200607
  3. SENOKOT [Concomitant]
     Indication: ABDOMINAL DISCOMFORT
     Dosage: 8.6 MG, 2X/DAY
     Route: 048
     Dates: start: 200405
  4. HYDROMORPH CONTIN [Concomitant]
     Indication: PAIN
     Dosage: 18 MG, 2X/DAY
     Route: 048
     Dates: start: 200403
  5. GABAPENTIN [Concomitant]
     Indication: NEURALGIA
     Dosage: 300 MG, 2X/DAY
     Route: 048
     Dates: start: 2004
  6. AVALIDE [Concomitant]
     Indication: HYPERTENSION
     Dosage: 300 MG (HALF TABLET), DAILY
     Route: 048
     Dates: start: 2002
  7. HYDROMORPHONE HYDROCHLORIDE [Concomitant]
     Indication: PAIN MANAGEMENT
     Dosage: UNK
     Dates: start: 200601, end: 200606
  8. HYDROMORPHONE HYDROCHLORIDE [Concomitant]
     Dosage: 4 MG, DAILY
     Route: 048
     Dates: start: 200701

REACTIONS (9)
  - Pneumonia [Unknown]
  - Pyrexia [Recovered/Resolved]
  - Dyspnoea [Unknown]
  - Blood pressure fluctuation [Recovered/Resolved]
  - Hallucination [Recovered/Resolved]
  - Chest discomfort [Recovered/Resolved]
  - Dyspnoea [Recovered/Resolved]
  - Night sweats [Recovered/Resolved]
  - Headache [Recovered/Resolved]
